FAERS Safety Report 9642467 (Version 1)
Quarter: 2013Q4

REPORT INFORMATION
  Report Type: Report from Study
  Country: CN (occurrence: CN)
  Receive Date: 20131024
  Receipt Date: 20131024
  Transmission Date: 20140711
  Serious: Yes (Hospitalization)
  Sender: FDA-Public Use
  Company Number: CN-BRISTOL-MYERS SQUIBB COMPANY-19590728

PATIENT
  Sex: Female

DRUGS (1)
  1. BYETTA [Suspect]
     Indication: BLOOD GLUCOSE ABNORMAL
     Route: 058
     Dates: start: 20130701, end: 2013

REACTIONS (2)
  - Gastric disorder [Recovered/Resolved]
  - Nausea [Recovered/Resolved]
